FAERS Safety Report 16337993 (Version 1)
Quarter: 2019Q2

REPORT INFORMATION
  Report Type: Spontaneous
  Country: NG (occurrence: NG)
  Receive Date: 20190521
  Receipt Date: 20190521
  Transmission Date: 20190711
  Serious: Yes (Hospitalization, Other)
  Sender: FDA-Public Use
  Company Number: NG-BRISTOL-MYERS SQUIBB COMPANY-BMS-2019-047432

PATIENT
  Age: 52 Year
  Sex: Male

DRUGS (3)
  1. EFAVIRENZ. [Suspect]
     Active Substance: EFAVIRENZ
     Indication: HIV INFECTION
     Route: 065
  2. LAMIVUDINE. [Suspect]
     Active Substance: LAMIVUDINE
     Indication: HIV INFECTION
     Route: 065
  3. TENOFOVIR [Suspect]
     Active Substance: TENOFOVIR
     Indication: HIV INFECTION
     Route: 065

REACTIONS (3)
  - Cryptococcosis [Unknown]
  - Immune reconstitution inflammatory syndrome [Unknown]
  - Meningitis cryptococcal [Unknown]
